FAERS Safety Report 12211805 (Version 1)
Quarter: 2016Q1

REPORT INFORMATION
  Report Type: Spontaneous
  Country: US (occurrence: US)
  Receive Date: 20160325
  Receipt Date: 20160325
  Transmission Date: 20160526
  Serious: Yes (Hospitalization, Other)
  Sender: FDA-Public Use
  Company Number: US-TEVA-646392USA

PATIENT
  Age: 60 Year
  Sex: Male

DRUGS (10)
  1. ALLOPURINOL. [Concomitant]
     Active Substance: ALLOPURINOL
     Indication: GOUT
     Dosage: 100 MILLIGRAM DAILY;
     Route: 065
  2. COLCHICINE. [Interacting]
     Active Substance: COLCHICINE
     Indication: GOUT
     Dosage: 0.6 MG THREE TIMES DAILY FOR THE FIRST 2 DAYS AND THEN COLCHICINE, 0.6 MG TWICE DAILY
     Route: 065
  3. CALCITRIOL. [Concomitant]
     Active Substance: CALCITRIOL
     Route: 065
  4. PRAVASTATIN [Suspect]
     Active Substance: PRAVASTATIN\PRAVASTATIN SODIUM
     Indication: GOUT
     Route: 065
  5. CARVEDILOL. [Concomitant]
     Active Substance: CARVEDILOL
     Route: 065
  6. CICLOSPORIN [Interacting]
     Active Substance: CYCLOSPORINE
     Indication: GOUT
     Route: 065
  7. PREDNISONE. [Concomitant]
     Active Substance: PREDNISONE
     Indication: GOUT
     Dosage: 30 MILLIGRAM DAILY;
     Route: 065
  8. FUROSEMIDE. [Concomitant]
     Active Substance: FUROSEMIDE
     Route: 065
  9. COLCHICINE. [Interacting]
     Active Substance: COLCHICINE
     Indication: GOUT
     Route: 065
  10. MYCOPHENOLATE MOFETIL. [Concomitant]
     Active Substance: MYCOPHENOLATE MOFETIL
     Route: 065

REACTIONS (5)
  - Metabolic acidosis [Recovering/Resolving]
  - Drug interaction [Recovering/Resolving]
  - Toxicity to various agents [Recovering/Resolving]
  - Multiple organ dysfunction syndrome [Recovering/Resolving]
  - Respiratory acidosis [Recovering/Resolving]
